FAERS Safety Report 9513260 (Version 1)
Quarter: 2013Q3

REPORT INFORMATION
  Report Type: Spontaneous
  Country: FR (occurrence: FR)
  Receive Date: 20130910
  Receipt Date: 20130910
  Transmission Date: 20140515
  Serious: Yes (Hospitalization)
  Sender: FDA-Public Use
  Company Number: FR-UCBSA-096560

PATIENT
  Age: 28 Year
  Sex: Male

DRUGS (8)
  1. XYZALL [Suspect]
     Route: 048
  2. IMUREL [Suspect]
     Indication: CROHN^S DISEASE
     Dates: start: 20130527, end: 20130531
  3. AUGMENTIN [Suspect]
     Indication: TONSILLITIS
     Dosage: 2 UNITS DAILY, 1G/125 MG
     Dates: start: 2013, end: 2013
  4. TRAMADOL HYDROCHLORIDE [Suspect]
     Dosage: 2 UNITS DAILY
     Route: 048
  5. PARACETAMOL [Suspect]
     Route: 048
  6. NASONEX [Concomitant]
  7. MULTICROM [Concomitant]
  8. MYOLASTAN [Concomitant]

REACTIONS (4)
  - Hepatocellular injury [Recovered/Resolved]
  - Cholestasis [Recovered/Resolved]
  - Lymphadenopathy [Unknown]
  - Influenza [Unknown]
